FAERS Safety Report 21215009 (Version 2)
Quarter: 2022Q3

REPORT INFORMATION
  Report Type: Spontaneous
  Country: US (occurrence: None)
  Receive Date: 20220816
  Receipt Date: 20220829
  Transmission Date: 20221027
  Serious: Yes (Hospitalization, Other)
  Sender: FDA-Public Use
  Company Number: US-VistaPharm, Inc.-VER202208-000695

PATIENT
  Sex: Female

DRUGS (9)
  1. METHADONE [Suspect]
     Active Substance: METHADONE HYDROCHLORIDE
     Indication: Drug use disorder
     Dosage: 115 MG (HOME MEDICATION FOUR YEARS PRIOR TO THE REPORTED PRESENTATION)
     Route: 065
  2. METHADONE [Suspect]
     Active Substance: METHADONE HYDROCHLORIDE
     Dosage: 15 MG (TAPERED DOWN FROM 115 MG; LED TO THE RESOLUTION OF HYPOGLYCAEMIA)
     Route: 065
  3. METHADONE [Suspect]
     Active Substance: METHADONE HYDROCHLORIDE
     Dosage: 105 MG (ADMITTED WITH PROFOUND HYPOGLYCAEMIA TWO YEARS PRIOR TO THE REPORTED PRESENTATION)
     Route: 065
  4. METHADONE [Suspect]
     Active Substance: METHADONE HYDROCHLORIDE
     Dosage: 40 MG (TAPERED ON DISCHARGE)
     Route: 065
  5. METHADONE [Suspect]
     Active Substance: METHADONE HYDROCHLORIDE
     Dosage: 60 MG (PRE-EMERGENT SURGERY TO REPAIR A PERFORATED GASTRIC ULCER AT THE REPORTED PRESENTATION)
     Route: 065
  6. AMLODIPINE [Concomitant]
     Active Substance: AMLODIPINE BESYLATE
     Indication: Product used for unknown indication
     Dosage: 5 MG (HOME MEDICATION DURING HYPOGLYCAEMIA FOUR YEARS PRIOR TO THE REPORTED PRESENTATION)
     Route: 065
  7. PREDNISONE [Concomitant]
     Active Substance: PREDNISONE
     Indication: Product used for unknown indication
     Dosage: 20 MG (ADMITTED WITH PROFOUND HYPOGLYCAEMIA TWO YEARS PRIOR TO THE REPORTED PRESENTATION)
     Route: 065
  8. PREDNISONE [Concomitant]
     Active Substance: PREDNISONE
     Dosage: UNKNOWN (ADVISED TO TAPER AND TRANSITION TO BUPRENORPHINE/NALOXONE; UNREPORTED IF DID)
     Route: 065
  9. BUPRENORPHINE\NALOXONE [Concomitant]
     Active Substance: BUPRENORPHINE\NALOXONE
     Indication: Drug use disorder
     Dosage: UNKNOWN
     Route: 065

REACTIONS (1)
  - Hyperinsulinaemic hypoglycaemia [Recovered/Resolved]
